FAERS Safety Report 25452210 (Version 1)
Quarter: 2025Q2

REPORT INFORMATION
  Report Type: Spontaneous
  Country: US (occurrence: None)
  Receive Date: 20250618
  Receipt Date: 20250618
  Transmission Date: 20250716
  Serious: Yes (Death)
  Sender: FDA-CTU
  Company Number: None

PATIENT
  Age: 92 Year
  Sex: Female

DRUGS (2)
  1. PROCRIT [Suspect]
     Active Substance: ERYTHROPOIETIN
     Indication: Anaemia
     Dosage: 20,000 UNITS ONCE WEEKLY ?
  2. PROCRIT [Suspect]
     Active Substance: ERYTHROPOIETIN
     Indication: Chronic kidney disease

REACTIONS (1)
  - Death [None]
